FAERS Safety Report 15813305 (Version 3)
Quarter: 2019Q1

REPORT INFORMATION
  Report Type: Spontaneous
  Country: DE (occurrence: DE)
  Receive Date: 20190111
  Receipt Date: 20190212
  Transmission Date: 20190417
  Serious: Yes (Other)
  Sender: FDA-Public Use
  Company Number: DE-MYLANLABS-2019M1001815

PATIENT
  Age: 36 Year
  Sex: Female

DRUGS (3)
  1. RAMIPRIL. [Suspect]
     Active Substance: RAMIPRIL
     Indication: PRODUCT USED FOR UNKNOWN INDICATION
     Dosage: 2.5MG, PREGNANCY WEEK 0?13
  2. XIPAMIDE [Suspect]
     Active Substance: XIPAMIDE
     Indication: PRODUCT USED FOR UNKNOWN INDICATION
     Dosage: PREGNANCY WEEK 0 TO 15(+3)
  3. MOXIFLOXACIN. [Suspect]
     Active Substance: MOXIFLOXACIN
     Indication: PRODUCT USED FOR UNKNOWN INDICATION
     Dosage: 1ST TRIMESTER

REACTIONS (3)
  - Contraindicated product administered [Recovered/Resolved]
  - Maternal exposure during pregnancy [Recovered/Resolved]
  - Pre-eclampsia [Unknown]
